FAERS Safety Report 15884250 (Version 3)
Quarter: 2019Q2

REPORT INFORMATION
  Report Type: Spontaneous
  Country: US (occurrence: US)
  Receive Date: 20190129
  Receipt Date: 20190523
  Transmission Date: 20190711
  Serious: No
  Sender: FDA-Public Use
  Company Number: US-PFIZER INC-2019039113

PATIENT
  Age: 58 Year
  Sex: Male

DRUGS (8)
  1. CYCLOBENZAPRINE [CYCLOBENZAPRINE HYDROCHLORIDE] [Concomitant]
     Indication: MUSCLE SPASMS
     Dosage: 10 MG, AS NEEDED(1 TABLET EVERY 8 HOURS)
     Dates: start: 20120606
  2. TRAMADOL. [Concomitant]
     Active Substance: TRAMADOL
     Indication: PAIN
     Dosage: 50 MG, AS NEEDED (1 TABLET UP TO 4 TIMES A DAY)
     Dates: start: 20170324
  3. GABAPENTIN. [Suspect]
     Active Substance: GABAPENTIN
     Indication: NEURALGIA
     Dosage: 100 MG, UNK
  4. GABAPENTIN. [Suspect]
     Active Substance: GABAPENTIN
     Indication: RESTLESS LEGS SYNDROME
     Dosage: 300 MG, 1X/DAY (ONE CAPSULE AT BED TIME)
     Route: 048
     Dates: start: 20180919, end: 20190108
  5. HYDROXYZINE HCL [Concomitant]
     Active Substance: HYDROXYZINE HYDROCHLORIDE
     Indication: PANIC DISORDER
  6. HYDROXYZINE HCL [Concomitant]
     Active Substance: HYDROXYZINE HYDROCHLORIDE
     Indication: ANXIETY
  7. GABAPENTIN. [Suspect]
     Active Substance: GABAPENTIN
     Indication: SLEEP DISORDER
  8. HYDROXYZINE HCL [Concomitant]
     Active Substance: HYDROXYZINE HYDROCHLORIDE
     Indication: STRESS
     Dosage: UNK UNK, AS NEEDED (1-3 TABLETS EVERY 6 HOUR)
     Dates: start: 20180228

REACTIONS (5)
  - Drug ineffective for unapproved indication [Recovering/Resolving]
  - Drug hypersensitivity [Unknown]
  - Dysphemia [Recovering/Resolving]
  - Bradyphrenia [Recovering/Resolving]
  - Off label use [Recovering/Resolving]
